FAERS Safety Report 4660025-8 (Version None)
Quarter: 2005Q2

REPORT INFORMATION
  Report Type: 
  Country: None (occurrence: None)
  Receive Date: 20050512
  Receipt Date: 20041207
  Transmission Date: 20051028
  Serious: Yes (Other)
  Sender: FDA-Public Use
  Company Number: US-BOEHRINGER INGELHEIM PHARMACEUTICALS, INC.-2004-BP-13281BP

PATIENT
  Age: 80 Year
  Sex: Male

DRUGS (13)
  1. FLOMAX [Suspect]
     Indication: BENIGN PROSTATIC HYPERPLASIA
     Route: 048
     Dates: start: 19960101
  2. ACTOS [Concomitant]
  3. NORVASC [Concomitant]
  4. METOPROLOL TARTRATE [Concomitant]
  5. LACTULOSE [Concomitant]
  6. SENNA [Concomitant]
  7. ARICEPT [Concomitant]
  8. B12 [Concomitant]
  9. VITAMIN E [Concomitant]
  10. TRAVATAN [Concomitant]
  11. TIMOLOL MALEATE [Concomitant]
  12. EPOGEN [Concomitant]
  13. LASIX [Concomitant]

REACTIONS (1)
  - PANCREATIC CARCINOMA [None]
